FAERS Safety Report 8800460 (Version 2)
Quarter: 2012Q4

REPORT INFORMATION
  Report Type: Report from Study
  Country: US (occurrence: US)
  Receive Date: 20120921
  Receipt Date: 20121002
  Transmission Date: 20130627
  Serious: Yes (Hospitalization)
  Sender: FDA-Public Use
  Company Number: US-ACTELION-A-NJ2012-71465

PATIENT
  Age: 75 Year
  Sex: Male

DRUGS (11)
  1. TRACLEER [Suspect]
     Indication: PULMONARY ARTERIAL HYPERTENSION
     Dosage: UNK
     Route: 048
     Dates: start: 201202
  2. COMBIVENT [Concomitant]
  3. CRESTOR [Concomitant]
  4. ASPIRIN [Concomitant]
  5. FLONASE [Concomitant]
  6. OMEPRAZOLE [Concomitant]
  7. PREDNISONE [Concomitant]
  8. LEVOTHYROXINE [Concomitant]
  9. CYANOCOBALAMIN [Concomitant]
  10. ASCORBIC ACID [Concomitant]
  11. ERGOCALCIFEROL [Concomitant]

REACTIONS (9)
  - Idiopathic pulmonary fibrosis [Not Recovered/Not Resolved]
  - Oedema peripheral [Not Recovered/Not Resolved]
  - Cough [Not Recovered/Not Resolved]
  - Dehydration [Not Recovered/Not Resolved]
  - Weight decreased [Not Recovered/Not Resolved]
  - Decreased appetite [Not Recovered/Not Resolved]
  - Acute respiratory failure [Unknown]
  - Dyspnoea [Unknown]
  - Oxygen saturation decreased [Unknown]
